FAERS Safety Report 8575296-5 (Version None)
Quarter: 2012Q3

REPORT INFORMATION
  Report Type: 
  Country: None (occurrence: None)
  Receive Date: 20120807
  Receipt Date: 20120731
  Transmission Date: 20120928
  Serious: Yes (Other)
  Sender: FDA-Public Use
  Company Number: US-PFIZER INC-2012186713

PATIENT
  Age: 69 Year
  Sex: Male
  Weight: 65.76 kg

DRUGS (2)
  1. TOVIAZ [Suspect]
     Indication: MICTURITION URGENCY
     Dosage: 4 MG,DAILY
     Route: 048
     Dates: start: 20120501, end: 20120515
  2. ACYCLOVIR [Concomitant]
     Indication: HERPES ZOSTER
     Dosage: 500 MG,DAILY

REACTIONS (1)
  - VISION BLURRED [None]
